FAERS Safety Report 6124932 (Version 27)
Quarter: 2013Q1

REPORT INFORMATION
  Report Type: Spontaneous
  Country: US (occurrence: US)
  Receive Date: 20060911
  Receipt Date: 20130311
  Transmission Date: 20140127
  Serious: Yes (Hospitalization, Other)
  Sender: FDA-Public Use
  Company Number: PHEH2006US11227

PATIENT
  Age: 58 Year
  Sex: Female
  Weight: 78 kg

DRUGS (41)
  1. ZOMETA [Suspect]
     Dosage: 4 MG,
     Route: 042
     Dates: start: 2003, end: 20050926
  2. CEFTRIAXONE [Suspect]
  3. VANCOMYCIN [Suspect]
  4. CLINDAMYCIN [Suspect]
     Dates: start: 20010518
  5. EFFEXOR [Concomitant]
     Dosage: 75 MG, TID
  6. VERAPAMIL [Concomitant]
     Indication: HYPERTENSION
     Dosage: 240 MG, QD
  7. LEXAPRO [Concomitant]
  8. PERCOCET [Concomitant]
  9. PRILOSEC [Concomitant]
  10. DICLOFENAC [Concomitant]
  11. NORTRIPTYLINE [Concomitant]
  12. WELLBUTRIN [Concomitant]
  13. KLONOPIN [Concomitant]
  14. ATIVAN [Concomitant]
  15. VITAMIN B12 [Concomitant]
  16. DOXYCYCLINE [Concomitant]
  17. ADVIL [Concomitant]
  18. CALCIUM WITH VITAMIN D [Concomitant]
  19. STEROIDS NOS [Concomitant]
  20. ZYRTEC [Concomitant]
  21. MOTRIN [Concomitant]
  22. AMOXIL ^AYERST LAB^ [Concomitant]
  23. AMBIEN [Concomitant]
  24. VIOXX [Concomitant]
  25. VICODIN [Concomitant]
  26. CELEBREX [Concomitant]
  27. KEFLEX                                  /UNK/ [Concomitant]
  28. BEXTRA [Concomitant]
  29. SPIRIVA [Concomitant]
  30. PROVENTIL [Concomitant]
  31. SANDOSTATIN [Concomitant]
  32. IMODIUM [Concomitant]
  33. KENALOG [Concomitant]
     Dates: start: 20060117, end: 20060207
  34. NORFLEX [Concomitant]
     Dates: start: 20060117, end: 20100524
  35. VYTORIN [Concomitant]
  36. ADVAIR [Concomitant]
  37. METAMUCIL [Concomitant]
  38. HEPARIN [Concomitant]
  39. CELEXA [Concomitant]
  40. NYSTATIN [Concomitant]
  41. NORMAL SALINE [Concomitant]

REACTIONS (133)
  - Arthralgia [Unknown]
  - Wound dehiscence [Unknown]
  - Erythema [Unknown]
  - Oral disorder [Unknown]
  - Periodontal destruction [Unknown]
  - Lymphadenopathy [Unknown]
  - Bone disorder [Unknown]
  - Impaired work ability [Unknown]
  - Osteosclerosis [Unknown]
  - Oral infection [Unknown]
  - Ear pain [Unknown]
  - Tenderness [Unknown]
  - Facial pain [Unknown]
  - Osteomyelitis [Unknown]
  - Chronic obstructive pulmonary disease [Unknown]
  - Barrett^s oesophagus [Unknown]
  - Restless legs syndrome [Unknown]
  - Tremor [Unknown]
  - Hypoaesthesia [Unknown]
  - Sleep apnoea syndrome [Unknown]
  - Vitamin B12 deficiency [Unknown]
  - Spinal osteoarthritis [Unknown]
  - Gastrointestinal haemorrhage [Unknown]
  - Tooth loss [Unknown]
  - Mastication disorder [Unknown]
  - Actinomycosis [Unknown]
  - Libido decreased [Unknown]
  - Breast tenderness [Unknown]
  - Neuropathy peripheral [Unknown]
  - Pharyngeal oedema [Unknown]
  - Vulvovaginal dryness [Unknown]
  - Fungal infection [Unknown]
  - Pain in extremity [Unknown]
  - Intervertebral disc degeneration [Unknown]
  - Lumbar spinal stenosis [Unknown]
  - Facet joint syndrome [Unknown]
  - Carpal tunnel syndrome [Unknown]
  - Paraesthesia [Unknown]
  - Rib fracture [Recovering/Resolving]
  - Lumbar radiculopathy [Unknown]
  - Furuncle [Unknown]
  - Epicondylitis [Unknown]
  - Herpes zoster [Unknown]
  - Haemoptysis [Unknown]
  - Gingival ulceration [Unknown]
  - Osteoarthritis [Unknown]
  - Meniscus injury [Unknown]
  - Renal cyst [Unknown]
  - Intestinal polyp [Unknown]
  - Haematochezia [Unknown]
  - Osteoporosis [Unknown]
  - Scoliosis [Unknown]
  - Nasal obstruction [Unknown]
  - Cerumen impaction [Unknown]
  - Anaemia [Unknown]
  - Somnolence [Unknown]
  - Flank pain [Unknown]
  - Nephrolithiasis [Unknown]
  - Diverticulum [Unknown]
  - Weight decreased [Unknown]
  - Dysphagia [Unknown]
  - Cardiac arrest [Unknown]
  - Pulmonary vascular disorder [Unknown]
  - Hypoxia [Unknown]
  - Hyponatraemia [Unknown]
  - Hypokalaemia [Unknown]
  - Dyspnoea [Unknown]
  - Rash generalised [Unknown]
  - Pyrexia [Recovered/Resolved]
  - Hypotension [Unknown]
  - Agitation [Unknown]
  - Pulmonary oedema [Unknown]
  - Fistula [Unknown]
  - Abscess jaw [Unknown]
  - Beta haemolytic streptococcal infection [Unknown]
  - Insomnia [Unknown]
  - Temporomandibular joint syndrome [Recovering/Resolving]
  - Ligament sprain [Unknown]
  - Foot fracture [Unknown]
  - Rotator cuff syndrome [Unknown]
  - Musculoskeletal pain [Unknown]
  - Abdominal discomfort [Unknown]
  - Cardiac murmur [Unknown]
  - Left atrial dilatation [Unknown]
  - Mitral valve incompetence [Unknown]
  - Hypercholesterolaemia [Unknown]
  - Sialoadenitis [Unknown]
  - Mucosal inflammation [Unknown]
  - Osteoma [Unknown]
  - Wound [Unknown]
  - Lung disorder [Unknown]
  - Varicose vein [Unknown]
  - Tendon calcification [Unknown]
  - Tendonitis [Unknown]
  - Carotid artery stenosis [Unknown]
  - Bipolar disorder [Unknown]
  - Hypothyroidism [Unknown]
  - Sinusitis [Unknown]
  - Cervical radiculopathy [Unknown]
  - Cholecystitis [Unknown]
  - Aortic calcification [Unknown]
  - Pleural fibrosis [Unknown]
  - Hepatic lesion [Unknown]
  - Rash [Unknown]
  - Musculoskeletal stiffness [Unknown]
  - Fall [Unknown]
  - Head injury [Unknown]
  - Limb injury [Unknown]
  - Haematoma [Unknown]
  - Excoriation [Unknown]
  - Contusion [Unknown]
  - Swelling [Unknown]
  - Avulsion fracture [Unknown]
  - Osteopenia [Unknown]
  - Cholelithiasis [Unknown]
  - Dysuria [Unknown]
  - Ligament disorder [Unknown]
  - Hypertrophy [Unknown]
  - Oesophagitis [Unknown]
  - Abdominal pain [Unknown]
  - Atelectasis [Unknown]
  - Arteriosclerosis [Unknown]
  - Arthropathy [Unknown]
  - Plasma cell myeloma [Unknown]
  - Bone pain [Unknown]
  - Back pain [Unknown]
  - Osteonecrosis of jaw [Unknown]
  - General physical health deterioration [Unknown]
  - Pain [Unknown]
  - Anxiety [Unknown]
  - Decreased interest [Unknown]
  - Mucosal ulceration [Unknown]
  - Arthritis [Unknown]
